FAERS Safety Report 7591561-2 (Version None)
Quarter: 2011Q2

REPORT INFORMATION
  Report Type: 
  Country: None (occurrence: None)
  Receive Date: 20110627
  Receipt Date: 20110615
  Transmission Date: 20111010
  Serious: Yes (Other)
  Sender: FDA-Public Use
  Company Number: DE-1186284

PATIENT
  Age: 41 Year
  Sex: Male
  Weight: 87 kg

DRUGS (4)
  1. IBUFLAM [Concomitant]
  2. SYSTANE EYE DROPS (SYSTANE ULTRA) [Suspect]
     Indication: SICCA SYNDROME
     Dosage: (3 X 1 DROP OPTHALMIC)
     Route: 047
     Dates: start: 20110321, end: 20110509
  3. MEPOLOL [Concomitant]
  4. PYRIDOXINE HCL [Concomitant]

REACTIONS (3)
  - CORNEAL EROSION [None]
  - EYE INJURY [None]
  - IMPAIRED WORK ABILITY [None]
